FAERS Safety Report 12561849 (Version 1)
Quarter: 2016Q3

REPORT INFORMATION
  Report Type: Spontaneous
  Country: US (occurrence: US)
  Receive Date: 20160715
  Receipt Date: 20160715
  Transmission Date: 20161109
  Serious: Yes (Other)
  Sender: FDA-Public Use
  Company Number: US-SA-2016SA126296

PATIENT
  Age: 43 Year
  Sex: Female

DRUGS (12)
  1. FLUDARABINE PHOSPHATE. [Suspect]
     Active Substance: FLUDARABINE PHOSPHATE
     Indication: BONE MARROW CONDITIONING REGIMEN
     Route: 042
     Dates: start: 2007, end: 2007
  2. ALEMTUZUMAB [Suspect]
     Active Substance: ALEMTUZUMAB
     Indication: BONE MARROW CONDITIONING REGIMEN
     Route: 042
     Dates: start: 200612, end: 200612
  3. PREDNISONE. [Suspect]
     Active Substance: PREDNISONE
     Indication: IMMUNOMODULATORY THERAPY
     Route: 065
  4. MELPHALAN [Concomitant]
     Active Substance: MELPHALAN
     Indication: CHEMOTHERAPY
     Route: 042
     Dates: start: 2007, end: 2007
  5. THALIDOMIDE [Suspect]
     Active Substance: THALIDOMIDE
     Indication: IMMUNE TOLERANCE INDUCTION
     Route: 065
  6. MELPHALAN [Concomitant]
     Active Substance: MELPHALAN
     Indication: CHEMOTHERAPY
  7. PREDNISONE. [Suspect]
     Active Substance: PREDNISONE
     Indication: IMMUNOMODULATORY THERAPY
     Route: 065
  8. CELLCEPT [Concomitant]
     Active Substance: MYCOPHENOLATE MOFETIL\MYCOPHENOLATE MOFETIL HYDROCHLORIDE
     Indication: IMMUNOMODULATORY THERAPY
  9. DEXAMETHASONE. [Suspect]
     Active Substance: DEXAMETHASONE
     Indication: IMMUNE TOLERANCE INDUCTION
     Route: 065
  10. FK 506 [Concomitant]
     Active Substance: TACROLIMUS
     Indication: IMMUNOMODULATORY THERAPY
  11. FLUDARABINE PHOSPHATE. [Suspect]
     Active Substance: FLUDARABINE PHOSPHATE
     Indication: BONE MARROW CONDITIONING REGIMEN
     Route: 065
     Dates: start: 200612, end: 200612
  12. CYCLOPHOSPHAMIDE. [Suspect]
     Active Substance: CYCLOPHOSPHAMIDE
     Indication: BONE MARROW CONDITIONING REGIMEN
     Route: 042
     Dates: start: 200612, end: 200612

REACTIONS (5)
  - Renal failure [Unknown]
  - Graft versus host disease [Recovered/Resolved]
  - Fluid overload [Unknown]
  - Off label use [Unknown]
  - Cytomegalovirus infection [Unknown]
